FAERS Safety Report 4947028-0 (Version None)
Quarter: 2006Q1

REPORT INFORMATION
  Report Type: 
  Country: None (occurrence: None)
  Receive Date: 20060317
  Receipt Date: 20060127
  Transmission Date: 20060701
  Serious: Yes (Hospitalization)
  Sender: FDA-Public Use
  Company Number: 2006UW01476

PATIENT
  Age: 71 Year
  Sex: Female
  Weight: 67.3 kg

DRUGS (9)
  1. FASLODEX [Suspect]
     Indication: BREAST CANCER
     Route: 030
     Dates: start: 20050401, end: 20060112
  2. VERAPAMIL [Concomitant]
  3. TRILEPTAL [Concomitant]
  4. KEPPRA [Concomitant]
  5. WARFARIN [Concomitant]
  6. PREDNISONE [Concomitant]
  7. ZOCOR [Concomitant]
  8. FOLTX [Concomitant]
  9. PERCOCET [Concomitant]

REACTIONS (3)
  - ASTHENIA [None]
  - CONVULSION [None]
  - NEURALGIA [None]
